FAERS Safety Report 5102078-9 (Version None)
Quarter: 2006Q3

REPORT INFORMATION
  Report Type: 
  Country: None (occurrence: None)
  Receive Date: 20060911
  Receipt Date: 20011214
  Transmission Date: 20061208
  Serious: Yes (Hospitalization)
  Sender: FDA-Public Use
  Company Number: US-MERCK-0112USA01631

PATIENT
  Age: 7 Year
  Sex: Female
  Weight: 17 kg

DRUGS (4)
  1. SINGULAIR [Suspect]
     Indication: ASTHMA
     Route: 048
     Dates: start: 20000901
  2. SINGULAIR [Suspect]
     Route: 048
     Dates: end: 20011208
  3. FLOVENT [Concomitant]
     Indication: ASTHMA
     Route: 055
     Dates: start: 20000101, end: 20011001
  4. BUDESONIDE [Concomitant]
     Route: 055
     Dates: start: 20011001

REACTIONS (1)
  - ALLERGIC GRANULOMATOUS ANGIITIS [None]
